FAERS Safety Report 4384601-5 (Version None)
Quarter: 2004Q2

REPORT INFORMATION
  Report Type: 
  Country: None (occurrence: None)
  Receive Date: 20040621
  Receipt Date: 20040603
  Transmission Date: 20050107
  Serious: Yes (Hospitalization)
  Sender: FDA-Public Use
  Company Number: 701897

PATIENT
  Age: 55 Year
  Sex: Male

DRUGS (8)
  1. ALEFACEPT [Suspect]
     Indication: PSORIASIS
     Dosage: 15 MG QW IM
     Dates: start: 20040107, end: 20040401
  2. METHOTREXATE [Concomitant]
  3. ADALAT [Concomitant]
  4. TEMGESIC [Concomitant]
  5. FUROSEMIDE [Concomitant]
  6. CIMETIDIN [Concomitant]
  7. ACETAMINOPHEN [Concomitant]
  8. KALEORID [Concomitant]

REACTIONS (8)
  - BONE MARROW DEPRESSION [None]
  - DISEASE RECURRENCE [None]
  - DIZZINESS [None]
  - ERYSIPELAS [None]
  - FATIGUE [None]
  - FEELING ABNORMAL [None]
  - PANCYTOPENIA [None]
  - STAPHYLOCOCCAL INFECTION [None]
